FAERS Safety Report 7377293-4 (Version None)
Quarter: 2011Q1

REPORT INFORMATION
  Report Type: 
  Country: None (occurrence: None)
  Receive Date: 20110328
  Receipt Date: 20110317
  Transmission Date: 20110831
  Serious: Yes (Other)
  Sender: FDA-Public Use
  Company Number: US-JNJFOC-20110308128

PATIENT
  Sex: Female

DRUGS (2)
  1. PERCOCET [Concomitant]
     Indication: PAIN
     Route: 048
  2. DURAGESIC-50 [Suspect]
     Indication: PAIN
     Route: 062

REACTIONS (2)
  - PAIN [None]
  - SPINAL FRACTURE [None]
